FAERS Safety Report 4444589-5 (Version None)
Quarter: 2004Q3

REPORT INFORMATION
  Report Type: 
  Country: None (occurrence: None)
  Receive Date: 20040907
  Receipt Date: 20040218
  Transmission Date: 20050211
  Serious: Yes (Hospitalization)
  Sender: FDA-Public Use
  Company Number: 30018582-R04A132-1

PATIENT
  Age: 59 Year
  Sex: Female
  Weight: 59 kg

DRUGS (2)
  1. DIANEAL [Suspect]
     Indication: PERITONEAL DIALYSIS
     Dosage: 1.5% , IP
     Route: 033
     Dates: start: 20021101
  2. DIANELA PD-2 [Concomitant]

REACTIONS (3)
  - ABDOMINAL PAIN [None]
  - INFUSION SITE PAIN [None]
  - PHARMACEUTICAL PRODUCT COMPLAINT [None]
